FAERS Safety Report 21303336 (Version 1)
Quarter: 2022Q3

REPORT INFORMATION
  Report Type: Spontaneous
  Country: US (occurrence: None)
  Receive Date: 20220907
  Receipt Date: 20220907
  Transmission Date: 20221027
  Serious: Yes (Death)
  Sender: FDA-Public Use
  Company Number: None

PATIENT
  Sex: Female
  Weight: 59.85 kg

DRUGS (10)
  1. REVLIMID [Suspect]
     Active Substance: LENALIDOMIDE
     Indication: Plasma cell myeloma
     Dosage: OTHER FREQUENCY : 21 ON/7 OFF;?
     Route: 048
     Dates: start: 20220718
  2. alprazolam 0.5 mg tablet [Concomitant]
  3. diltiazem 120 mg tablet [Concomitant]
  4. MIRTAZAPINE [Concomitant]
     Active Substance: MIRTAZAPINE
  5. Probiotic 5 billion cell sprinkle capsule [Concomitant]
  6. ROSUVASTATIN [Concomitant]
     Active Substance: ROSUVASTATIN
  7. Spiriva Respimat 2.5 mcg/actuation solution for inhalation [Concomitant]
  8. triamcinolone acetonide 0.1 % topical ointment [Concomitant]
  9. Tylenol 325 mg tablet [Concomitant]
  10. Vitamin C 500 mg tablet [Concomitant]

REACTIONS (1)
  - Death [None]
